FAERS Safety Report 9995370 (Version 2)
Quarter: 2014Q1

REPORT INFORMATION
  Report Type: Spontaneous
  Country: TR (occurrence: TR)
  Receive Date: 20140311
  Receipt Date: 20140325
  Transmission Date: 20141002
  Serious: Yes (Death)
  Sender: FDA-Public Use
  Company Number: TR-ASTELLAS-2014US002355

PATIENT
  Age: 10 Year
  Sex: Male

DRUGS (8)
  1. AMBISOME [Suspect]
     Indication: BRONCHOPULMONARY ASPERGILLOSIS
     Dosage: UNK
     Route: 065
  2. VORICONAZOLE [Suspect]
  3. ANTITHYMOCYTE IMMUNOGLOBULIN (RABBIT) [Suspect]
     Indication: IMMUNOSUPPRESSANT DRUG THERAPY
     Dosage: 2 MG/KG, UNKNOWN/D
     Route: 042
  4. FLUCONAZOL [Suspect]
     Indication: ANTIFUNGAL PROPHYLAXIS
     Dosage: UNK
     Route: 048
  5. METHYLPREDNISOLONE [Suspect]
     Indication: SERUM SICKNESS
     Dosage: 2 MG/KG, UID/QD
     Route: 064
  6. CYCLOSPORINE [Suspect]
     Indication: PRODUCT USED FOR UNKNOWN INDICATION
     Dosage: 10 MG/KG, UID/QD
     Route: 048
  7. GRANULOCYTE COLONY-STIMULATING FACTOR NOS [Suspect]
     Indication: PRODUCT USED FOR UNKNOWN INDICATION
     Dosage: 5 UG/KG, UID/QD
     Route: 058
  8. TRIMETHOPRIM SULFAMETHOXAZOLE [Suspect]
     Indication: ANTIFUNGAL PROPHYLAXIS
     Dosage: UNK
     Route: 065

REACTIONS (1)
  - Drug ineffective [Fatal]
